FAERS Safety Report 23142384 (Version 2)
Quarter: 2023Q4

REPORT INFORMATION
  Report Type: Spontaneous
  Country: CN (occurrence: CN)
  Receive Date: 20231103
  Receipt Date: 20231220
  Transmission Date: 20240110
  Serious: Yes (Life-Threatening, Hospitalization, Disabling, Other)
  Sender: FDA-Public Use
  Company Number: CN-002147023-NVSC2023CN232442

PATIENT
  Age: 29 Year
  Sex: Male
  Weight: 88.7 kg

DRUGS (11)
  1. COSENTYX [Suspect]
     Active Substance: SECUKINUMAB
     Indication: Psoriasis
     Dosage: 2 DOSAGE FORM (TWO ABDOMINAL SUBCUTANEOUS INJECTIONS)
     Route: 058
     Dates: start: 20220303, end: 202306
  2. ROPIVACAINE [Concomitant]
     Active Substance: ROPIVACAINE
     Indication: Local anaesthesia
     Dosage: UNK
     Route: 065
  3. DEXTROSE [Concomitant]
     Active Substance: DEXTROSE\DEXTROSE MONOHYDRATE
     Indication: Product used for unknown indication
     Dosage: UNK
     Route: 065
  4. SODIUM LACTATE [Concomitant]
     Active Substance: SODIUM LACTATE
     Indication: Product used for unknown indication
     Dosage: UNK (RINGER INJECTION)
     Route: 065
  5. SODIUM CHLORIDE [Concomitant]
     Active Substance: SODIUM CHLORIDE
     Indication: Product used for unknown indication
     Dosage: UNK
     Route: 065
  6. DEXAMETHASONE SODIUM PHOSPHATE [Concomitant]
     Active Substance: DEXAMETHASONE PHOSPHATE\DEXAMETHASONE SODIUM PHOSPHATE
     Indication: Product used for unknown indication
     Dosage: UNK
     Route: 065
  7. ROCURONIUM [Concomitant]
     Active Substance: ROCURONIUM BROMIDE
     Indication: Product used for unknown indication
     Dosage: UNK
     Route: 065
  8. SEVOFLURANE [Concomitant]
     Active Substance: SEVOFLURANE
     Indication: Product used for unknown indication
     Dosage: UNK
     Route: 065
  9. REMIFENTANIL HYDROCHLORIDE [Concomitant]
     Active Substance: REMIFENTANIL HYDROCHLORIDE
     Indication: Product used for unknown indication
     Dosage: UNK
     Route: 065
  10. PROPOFOL [Concomitant]
     Active Substance: PROPOFOL
     Indication: Product used for unknown indication
     Dosage: UNK
     Route: 065
  11. ERYTHROMYCIN [Concomitant]
     Active Substance: ERYTHROMYCIN
     Indication: Product used for unknown indication
     Dosage: UNK
     Route: 065

REACTIONS (24)
  - Squamous cell carcinoma of the tongue [Recovered/Resolved with Sequelae]
  - Mouth ulceration [Recovered/Resolved with Sequelae]
  - Soft tissue mass [Recovered/Resolved with Sequelae]
  - Tongue ulceration [Unknown]
  - Tongue eruption [Unknown]
  - Glossodynia [Unknown]
  - Leukoplakia oral [Unknown]
  - Blood pressure increased [Unknown]
  - Basophil percentage increased [Unknown]
  - Monocyte count increased [Unknown]
  - Basophil count increased [Unknown]
  - Lymphocyte percentage decreased [Unknown]
  - Monocyte percentage increased [Unknown]
  - Fascial infection [Unknown]
  - Tonsillar hypertrophy [Unknown]
  - Mucosal hypertrophy [Unknown]
  - Lymphadenopathy [Unknown]
  - Mean cell haemoglobin concentration increased [Unknown]
  - Alanine aminotransferase increased [Unknown]
  - High density lipoprotein decreased [Unknown]
  - Blood alkaline phosphatase decreased [Unknown]
  - Gamma-glutamyltransferase increased [Unknown]
  - Blood triglycerides increased [Unknown]
  - Activated partial thromboplastin time shortened [Unknown]

NARRATIVE: CASE EVENT DATE: 20230710
